FAERS Safety Report 7436169-4 (Version None)
Quarter: 2011Q2

REPORT INFORMATION
  Report Type: 
  Country: None (occurrence: None)
  Receive Date: 20110425
  Receipt Date: 20110412
  Transmission Date: 20111010
  Serious: Yes (Death, Other)
  Sender: FDA-Public Use
  Company Number: IT-CELGENEUS-083-21880-11031573

PATIENT
  Sex: Male
  Weight: 90 kg

DRUGS (7)
  1. REVLIMID [Suspect]
     Dosage: 10 MILLIGRAM
     Route: 048
     Dates: start: 20100721
  2. NORVASC [Concomitant]
     Indication: HYPERTENSION
     Dosage: 10 MILLIGRAM
     Route: 065
     Dates: start: 20100914, end: 20101009
  3. REVLIMID [Suspect]
     Dosage: 10 MILLIGRAM
     Route: 048
     Dates: start: 20100914, end: 20101004
  4. CYTARABINE [Suspect]
     Dosage: 40 MILLIGRAM
     Route: 058
     Dates: start: 20100721
  5. CEFTAZIDIME [Concomitant]
     Indication: INFECTION PROPHYLAXIS
     Dosage: 6 GRAM
     Route: 065
     Dates: start: 20101007, end: 20101009
  6. CYTARABINE [Suspect]
     Dosage: 40 MILLIGRAM
     Route: 058
     Dates: start: 20100914, end: 20100928
  7. DIFLUCAN [Concomitant]
     Indication: INFECTION PROPHYLAXIS
     Dosage: 200 MILLIGRAM
     Route: 065
     Dates: start: 20101007, end: 20101009

REACTIONS (1)
  - PULMONARY OEDEMA [None]
